FAERS Safety Report 9596393 (Version 1)
Quarter: 2013Q4

REPORT INFORMATION
  Report Type: Spontaneous
  Country: US (occurrence: US)
  Receive Date: 20131004
  Receipt Date: 20131004
  Transmission Date: 20140711
  Serious: Yes (Other)
  Sender: FDA-Public Use
  Company Number: US-AMGEN-USASP2013068539

PATIENT
  Sex: Female

DRUGS (1)
  1. PROLIA [Suspect]
     Indication: OSTEOPOROSIS POSTMENOPAUSAL
     Dosage: UNK
     Route: 065
     Dates: start: 20120111

REACTIONS (6)
  - Knee arthroplasty [Unknown]
  - Cardiac disorder [Unknown]
  - Osteonecrosis of jaw [Unknown]
  - Loose tooth [Unknown]
  - Myalgia [Unknown]
  - Arthralgia [Unknown]
